FAERS Safety Report 8230219-3 (Version None)
Quarter: 2012Q1

REPORT INFORMATION
  Report Type: 
  Country: None (occurrence: None)
  Receive Date: 20120321
  Receipt Date: 20120321
  Transmission Date: 20120608
  Serious: No
  Sender: FDA-Public Use
  Company Number: None

PATIENT
  Age: 39 Year
  Sex: Female

DRUGS (1)
  1. SYNTHROID [Suspect]
     Indication: HYPOTHYROIDISM
     Dosage: 1 TABLET 150 MCG BY MOUTH DAILY
     Route: 048
     Dates: start: 20111201, end: 20120313

REACTIONS (2)
  - THYROID DISORDER [None]
  - PRODUCT QUALITY ISSUE [None]
